FAERS Safety Report 8166168-9 (Version None)
Quarter: 2012Q1

REPORT INFORMATION
  Report Type: 
  Country: None (occurrence: None)
  Receive Date: 20120227
  Receipt Date: 20110509
  Transmission Date: 20120608
  Serious: No
  Sender: FDA-Public Use
  Company Number: US-MYLANLABS-2011S1008308

PATIENT
  Age: 15 Year
  Sex: Female
  Weight: 58.06 kg

DRUGS (5)
  1. NEXIUM [Concomitant]
     Dates: start: 20101201
  2. AMNESTEEM [Suspect]
     Route: 048
     Dates: end: 20110124
  3. AMNESTEEM [Suspect]
     Indication: ACNE CYSTIC
     Route: 048
     Dates: start: 20100727
  4. ORAL CONTRACEPTIVE NOS [Concomitant]
  5. PREVACID [Concomitant]
     Dates: start: 20101201

REACTIONS (3)
  - OCULAR DISCOMFORT [None]
  - GASTROINTESTINAL DISORDER [None]
  - HEADACHE [None]
